FAERS Safety Report 6915961-6 (Version None)
Quarter: 2010Q3

REPORT INFORMATION
  Report Type: 
  Country: None (occurrence: None)
  Receive Date: 20100805
  Receipt Date: 20100724
  Transmission Date: 20110219
  Serious: Yes (Other)
  Sender: FDA-Public Use
  Company Number: 7011735

PATIENT
  Age: 31 Year
  Sex: Male

DRUGS (2)
  1. REBIF [Suspect]
     Indication: MULTIPLE SCLEROSIS
     Dosage: 44 MCG, 3 IN 1 WK, SUBCUTANEOUS
     Route: 058
     Dates: start: 20100126
  2. ADVIL LIQUI-GELS [Concomitant]

REACTIONS (12)
  - ANTINUCLEAR ANTIBODY POSITIVE [None]
  - ARTHROPOD BITE [None]
  - FATIGUE [None]
  - HYPERHIDROSIS [None]
  - INJECTION SITE DRYNESS [None]
  - INJECTION SITE ERYTHEMA [None]
  - MUSCULOSKELETAL STIFFNESS [None]
  - OEDEMA PERIPHERAL [None]
  - PAIN IN EXTREMITY [None]
  - PRURITUS [None]
  - SENSATION OF FOREIGN BODY [None]
  - VASCULITIS [None]
